FAERS Safety Report 16462444 (Version 1)
Quarter: 2019Q2

REPORT INFORMATION
  Report Type: Spontaneous
  Country: FR (occurrence: FR)
  Receive Date: 20190621
  Receipt Date: 20190621
  Transmission Date: 20190711
  Serious: Yes (Other)
  Sender: FDA-Public Use
  Company Number: FR-PFIZER INC-2019261702

PATIENT
  Age: 26 Year
  Sex: Female
  Weight: 49 kg

DRUGS (18)
  1. BEROCCA [Concomitant]
     Active Substance: VITAMINS
     Dosage: UNK
     Route: 048
     Dates: start: 20190220, end: 20190301
  2. ACIDE FOLIQUE [Concomitant]
     Active Substance: FOLIC ACID
     Dosage: UNK
     Route: 048
     Dates: start: 20190220, end: 20190225
  3. DIFFU K [Concomitant]
     Active Substance: POTASSIUM CHLORIDE
     Dosage: UNK
     Route: 048
     Dates: start: 20190221, end: 20190301
  4. BRINTELLIX [Suspect]
     Active Substance: VORTIOXETINE HYDROBROMIDE
     Indication: DEPRESSION
     Dosage: UNK
     Route: 048
     Dates: start: 20190403, end: 20190405
  5. NOZINAN [Concomitant]
     Active Substance: LEVOMEPROMAZINE
     Dosage: UNK
     Route: 048
     Dates: start: 20190214, end: 20190215
  6. MAG 2 [Concomitant]
     Active Substance: MAGNESIUM
     Dosage: UNK
     Route: 048
     Dates: start: 20190220, end: 20190226
  7. DIAZEPAM. [Suspect]
     Active Substance: DIAZEPAM
     Indication: DEPRESSION
     Dosage: UNK
     Route: 048
     Dates: start: 20190225
  8. FOSFOPHARMA [Concomitant]
     Dosage: UNK
     Route: 048
     Dates: start: 20190407
  9. PAROXETINE. [Suspect]
     Active Substance: PAROXETINE
     Indication: DEPRESSION
     Dosage: UNK
     Route: 048
     Dates: start: 20190208, end: 20190212
  10. PHOSPHONEUROS [Concomitant]
     Active Substance: CALCIUM PHOSPHATE, DIBASIC, ANHYDROUS\MAGNESIUM GLYCEROPHOSPHATE\PHOSPHORIC ACID\SODIUM PHOSPHATE, DIBASIC
     Dosage: UNK
     Route: 048
     Dates: start: 20190209, end: 20190211
  11. SERESTA [Concomitant]
     Active Substance: OXAZEPAM
     Dosage: UNK
     Route: 048
     Dates: start: 20190404
  12. BACTRIM [Concomitant]
     Active Substance: SULFAMETHOXAZOLE\TRIMETHOPRIM
     Dosage: UNK
     Route: 048
     Dates: start: 20190407, end: 20190414
  13. IMOVANE [Concomitant]
     Active Substance: ZOPICLONE
     Dosage: UNK
     Route: 048
     Dates: start: 20190208, end: 20190228
  14. TERCIAN [Suspect]
     Active Substance: CYAMEMAZINE
     Indication: DEPRESSION
     Dosage: UNK
     Route: 048
     Dates: start: 20190404
  15. SERTRALINE HCL [Suspect]
     Active Substance: SERTRALINE HYDROCHLORIDE
     Indication: DEPRESSION
     Dosage: UNK
     Route: 048
     Dates: start: 20190215
  16. BEVITINE [Concomitant]
     Active Substance: THIAMINE HYDROCHLORIDE
     Dosage: UNK
     Route: 048
     Dates: start: 20190220, end: 20190224
  17. MOVICOL [Concomitant]
     Active Substance: POLYETHYLENE GLYCOL 3350\POTASSIUM CHLORIDE\SODIUM BICARBONATE\SODIUM CHLORIDE
     Dosage: UNK
     Route: 048
     Dates: start: 20190220, end: 20190226
  18. TEMESTA [Concomitant]
     Dosage: UNK
     Route: 048
     Dates: start: 20190207, end: 20190225

REACTIONS (1)
  - Urinary retention [Not Recovered/Not Resolved]

NARRATIVE: CASE EVENT DATE: 20190209
